FAERS Safety Report 19979515 (Version 6)
Quarter: 2023Q1

REPORT INFORMATION
  Report Type: Spontaneous
  Country: IT (occurrence: IT)
  Receive Date: 20211021
  Receipt Date: 20230222
  Transmission Date: 20230417
  Serious: Yes (Death, Life-Threatening, Other)
  Sender: FDA-Public Use
  Company Number: IT-MOLTENI-2021ML000402

PATIENT
  Age: 18 Year
  Sex: Male

DRUGS (10)
  1. FLURAZEPAM [Interacting]
     Active Substance: FLURAZEPAM HYDROCHLORIDE
     Indication: Product used for unknown indication
     Dosage: UNK
     Route: 065
  2. MIRTAZAPINE [Interacting]
     Active Substance: MIRTAZAPINE
     Indication: Product used for unknown indication
     Dosage: 30 MILLIGRAM, 1 TOTAL
     Route: 048
  3. METHADONE [Interacting]
     Active Substance: METHADONE HYDROCHLORIDE
     Indication: Product used for unknown indication
     Dosage: UNK (HALF OF A VIAL)
     Route: 065
  4. MIRTAZAPINE [Suspect]
     Active Substance: MIRTAZAPINE
     Indication: Product used for unknown indication
     Dosage: UNK (30MG TABLETS WERE RETRIEVED FROM HIS CAR)
     Route: 065
  5. PAROXETINE [Concomitant]
     Active Substance: PAROXETINE
     Indication: Anxiety
     Dosage: UNK
     Route: 065
  6. CARBAMAZEPINE [Concomitant]
     Active Substance: CARBAMAZEPINE
     Indication: Anger
     Dosage: UNK
     Route: 065
  7. VALPROIC ACID [Concomitant]
     Active Substance: VALPROIC ACID
     Dosage: UNK
     Route: 065
  8. PROMAZINE [Concomitant]
     Active Substance: PROMAZINE
     Dosage: UNK
     Route: 065
  9. ZOLPIDEM [Concomitant]
     Active Substance: ZOLPIDEM TARTRATE
     Dosage: UNK
     Route: 065
  10. DELORAZEPAM [Concomitant]
     Active Substance: DELORAZEPAM
     Dosage: UNK
     Route: 065

REACTIONS (25)
  - Toxicity to various agents [Fatal]
  - Brain oedema [Fatal]
  - Pulmonary oedema [Fatal]
  - Overdose [Fatal]
  - Nervous system disorder [Fatal]
  - Drug interaction [Fatal]
  - Intentional overdose [Fatal]
  - Drug abuse [Fatal]
  - Unresponsive to stimuli [Fatal]
  - Respiratory depression [Fatal]
  - Somnolence [Fatal]
  - Vomiting [Fatal]
  - Depressed level of consciousness [Fatal]
  - Pneumonia [Fatal]
  - Pulmonary haemorrhage [Fatal]
  - Loss of consciousness [Recovered/Resolved]
  - Dyspnoea [Recovered/Resolved]
  - Malaise [Recovered/Resolved]
  - Regurgitation [Recovered/Resolved]
  - Delirium [Recovered/Resolved]
  - Hypokinesia [Recovered/Resolved]
  - Grunting [Recovered/Resolved]
  - Dysarthria [Unknown]
  - Hiccups [Recovered/Resolved]
  - Snoring [Recovered/Resolved]
